FAERS Safety Report 25895872 (Version 1)
Quarter: 2025Q4

REPORT INFORMATION
  Report Type: Spontaneous
  Country: US (occurrence: US)
  Receive Date: 20251008
  Receipt Date: 20251008
  Transmission Date: 20260117
  Serious: No
  Sender: CHATTEM
  Company Number: US-OPELLA-2025OHG029477

PATIENT
  Age: 18 Year
  Sex: Male

DRUGS (1)
  1. ALLEGRA-D 24 HOUR [Suspect]
     Active Substance: FEXOFENADINE HYDROCHLORIDE\PSEUDOEPHEDRINE HYDROCHLORIDE
     Indication: Product used for unknown indication
     Dosage: STRENGTH: 180 MG+240 MG
     Route: 065
     Dates: start: 2025

REACTIONS (3)
  - Nasal inflammation [Unknown]
  - Nasal dryness [Unknown]
  - Irritability [Unknown]

NARRATIVE: CASE EVENT DATE: 20250101
